FAERS Safety Report 5454933-8 (Version None)
Quarter: 2007Q3

REPORT INFORMATION
  Report Type: 
  Country: None (occurrence: None)
  Receive Date: 20070917
  Receipt Date: 20070905
  Transmission Date: 20080115
  Serious: Yes (Other)
  Sender: FDA-Public Use
  Company Number: GB-PFIZER INC-2007074809

PATIENT
  Age: 45 Year
  Sex: Female

DRUGS (1)
  1. CHAMPIX [Suspect]
     Indication: SMOKING CESSATION THERAPY
     Dosage: TEXT:1MG
     Route: 048
     Dates: start: 20070223, end: 20070301

REACTIONS (6)
  - CONFUSIONAL STATE [None]
  - DEPRESSED MOOD [None]
  - HEADACHE [None]
  - INSOMNIA [None]
  - MALAISE [None]
  - SOMNOLENCE [None]
